FAERS Safety Report 24733533 (Version 1)
Quarter: 2024Q4

REPORT INFORMATION
  Report Type: Spontaneous
  Country: US (occurrence: US)
  Receive Date: 20241213
  Receipt Date: 20241213
  Transmission Date: 20250115
  Serious: Yes (Other)
  Sender: NOVARTIS
  Company Number: US-002147023-NVSC2024US237223

PATIENT
  Sex: Female

DRUGS (3)
  1. LETROZOLE [Suspect]
     Active Substance: LETROZOLE
     Indication: Product used for unknown indication
     Dosage: 2.5 MG
     Route: 065
     Dates: start: 201906, end: 20200301
  2. LETROZOLE [Suspect]
     Active Substance: LETROZOLE
     Dosage: UNK
     Route: 065
     Dates: start: 202104
  3. IBRANCE [Suspect]
     Active Substance: PALBOCICLIB
     Indication: Hormone receptor positive breast cancer
     Dosage: 75 MG, QD (FOR 21 DAYS, THEN OFF 7 DAYS)
     Route: 048
     Dates: start: 20241104, end: 20241125

REACTIONS (7)
  - Neuropathy peripheral [Unknown]
  - Breast cancer female [Unknown]
  - Bone cancer [Unknown]
  - Cancer pain [Unknown]
  - Gene mutation [Unknown]
  - Pain [Unknown]
  - Fatigue [Unknown]
